FAERS Safety Report 5827769-3 (Version None)
Quarter: 2008Q3

REPORT INFORMATION
  Report Type: 
  Country: None (occurrence: None)
  Receive Date: 20080728
  Receipt Date: 20080709
  Transmission Date: 20090109
  Serious: Yes (Hospitalization)
  Sender: FDA-Public Use
  Company Number: CHNY2008FR02642

PATIENT
  Age: 68 Year
  Sex: Male

DRUGS (9)
  1. VOLTAREN [Suspect]
     Indication: WOUND
     Dosage: TOPICAL
     Route: 061
     Dates: start: 20080505, end: 20080526
  2. ROCEPHIN [Suspect]
     Indication: INFECTION
     Dosage: INTRAMUSCULAR
     Route: 030
     Dates: start: 20080519, end: 20080522
  3. GLUCOPHAGE [Concomitant]
  4. AMARYL [Concomitant]
  5. GLUCOR (ACARBOSE) [Concomitant]
  6. DILTIAZEM HYDROCHLORIDE [Concomitant]
  7. RAMIPRIL [Concomitant]
  8. INDAPAMIDE [Concomitant]
  9. INEGY (EZETIMIBE, SIMVASTATIN) [Concomitant]

REACTIONS (6)
  - ECZEMA INFECTED [None]
  - OEDEMA PERIPHERAL [None]
  - RASH ERYTHEMATOUS [None]
  - RASH MACULO-PAPULAR [None]
  - SKIN INFECTION [None]
  - WOUND SECRETION [None]
